FAERS Safety Report 7739816-2 (Version None)
Quarter: 2011Q3

REPORT INFORMATION
  Report Type: 
  Country: None (occurrence: None)
  Receive Date: 20110909
  Receipt Date: 20110826
  Transmission Date: 20111222
  Serious: Yes (Hospitalization, Other)
  Sender: FDA-Public Use
  Company Number: PHHY2011FR76248

PATIENT
  Sex: Female

DRUGS (11)
  1. FUROSEMIDE [Suspect]
     Dosage: 40 MG, DAILY
     Route: 048
  2. RILMENIDINE [Concomitant]
     Dosage: UNK UKN, UNK
     Dates: start: 20110601
  3. PREVISCAN [Concomitant]
     Dosage: UNK UKN, UNK
     Dates: start: 20110601
  4. CORVASAL [Concomitant]
     Dosage: UNK UKN, UNK
     Dates: start: 20110601
  5. FORLAX [Concomitant]
     Dosage: UNK UKN, UNK
     Dates: start: 20110601
  6. POTASSIUM CHLORIDE [Concomitant]
     Dosage: UNK UKN, UNK
     Dates: start: 20110601
  7. VALSARTAN [Suspect]
     Indication: HYPERTENSION
     Dosage: UNK UKN, UNK
     Route: 048
     Dates: start: 20110601, end: 20110702
  8. FUROSEMIDE [Suspect]
     Indication: CARDIAC FAILURE
     Dosage: UNK UKN, UNK
     Dates: start: 20110601
  9. DILTIAZEM HCL [Concomitant]
     Dosage: UNK UKN, UNK
     Dates: start: 20110601
  10. FENOFIBRATE [Concomitant]
     Dosage: UNK UKN, UNK
     Dates: start: 20110601
  11. CALCIUM CARBONATE [Concomitant]
     Dosage: UNK UKN, UNK
     Dates: start: 20110601

REACTIONS (7)
  - ASTHENIA [None]
  - BLOOD UREA INCREASED [None]
  - BLOOD CREATININE INCREASED [None]
  - RENAL FAILURE ACUTE [None]
  - HYPERKALAEMIA [None]
  - GENERAL PHYSICAL HEALTH DETERIORATION [None]
  - DYSPNOEA [None]
